FAERS Safety Report 7322175-7 (Version None)
Quarter: 2011Q1

REPORT INFORMATION
  Report Type: 
  Country: None (occurrence: None)
  Receive Date: 20110228
  Receipt Date: 20110218
  Transmission Date: 20110831
  Serious: Yes (Hospitalization, Other)
  Sender: FDA-Public Use
  Company Number: US-MERCK-0904USA03008

PATIENT
  Age: 57 Year
  Sex: Female

DRUGS (7)
  1. PREMARIN [Concomitant]
     Route: 065
     Dates: start: 19860101
  2. ALPRAZOLAM [Concomitant]
     Route: 065
     Dates: start: 19800101
  3. FUROSEMIDE [Concomitant]
     Route: 065
     Dates: start: 19800101
  4. TEMAZEPAM [Concomitant]
     Route: 065
     Dates: start: 19890101
  5. METHOTREXATE [Concomitant]
     Route: 065
     Dates: start: 19800101
  6. FOSAMAX [Suspect]
     Indication: OSTEOPOROSIS
     Route: 048
     Dates: start: 19960101, end: 20070101
  7. FOLIC ACID [Concomitant]
     Route: 065
     Dates: start: 19850101

REACTIONS (71)
  - CONSTIPATION [None]
  - GASTRIC ULCER [None]
  - ARTHROPATHY [None]
  - ARTHRITIS BACTERIAL [None]
  - MALNUTRITION [None]
  - BRONCHOPNEUMONIA [None]
  - EXOSTOSIS [None]
  - OSTEONECROSIS [None]
  - OSTEOMYELITIS CHRONIC [None]
  - MALAISE [None]
  - PLEURAL EFFUSION [None]
  - CARDIAC FAILURE CONGESTIVE [None]
  - DEPRESSION [None]
  - MASTICATION DISORDER [None]
  - IMPAIRED HEALING [None]
  - GASTRITIS [None]
  - LOSS OF CONSCIOUSNESS [None]
  - DRUG HYPERSENSITIVITY [None]
  - HIATUS HERNIA [None]
  - SWELLING [None]
  - DENTAL CARIES [None]
  - OSTEITIS [None]
  - HYPERTENSIVE HEART DISEASE [None]
  - FINGER DEFORMITY [None]
  - BUNION [None]
  - ANAEMIA OF CHRONIC DISEASE [None]
  - ATRIAL FIBRILLATION [None]
  - HYPOTENSION [None]
  - HYPOVOLAEMIA [None]
  - PANCREATITIS ACUTE [None]
  - GASTRIC ULCER HAEMORRHAGE [None]
  - TOOTH FRACTURE [None]
  - JOINT DISLOCATION [None]
  - JAW DISORDER [None]
  - GINGIVAL DISORDER [None]
  - CHRONIC SINUSITIS [None]
  - ANXIETY [None]
  - RENAL FAILURE ACUTE [None]
  - CHEST PAIN [None]
  - TEMPOROMANDIBULAR JOINT SYNDROME [None]
  - SYNOVITIS [None]
  - STAPHYLOCOCCAL SKIN INFECTION [None]
  - JAW CYST [None]
  - HYPERLIPIDAEMIA [None]
  - ANKLE FRACTURE [None]
  - OESOPHAGEAL ULCER [None]
  - MENTAL STATUS CHANGES [None]
  - WEIGHT INCREASED [None]
  - WEIGHT DECREASED [None]
  - MUSCULOSKELETAL PAIN [None]
  - FIBULA FRACTURE [None]
  - CYSTITIS [None]
  - HYPOTHYROIDISM [None]
  - DYSPEPSIA [None]
  - GINGIVAL BLEEDING [None]
  - OSTEONECROSIS OF JAW [None]
  - SCLERODERMA [None]
  - DEHYDRATION [None]
  - RESPIRATORY TRACT INFECTION [None]
  - ALVEOLAR OSTEITIS [None]
  - PAIN [None]
  - TREATMENT NONCOMPLIANCE [None]
  - TOE AMPUTATION [None]
  - EDENTULOUS [None]
  - HYPOAESTHESIA FACIAL [None]
  - TRISMUS [None]
  - BRONCHITIS CHRONIC [None]
  - OSTEOMYELITIS [None]
  - LETHARGY [None]
  - PARAESTHESIA [None]
  - FATIGUE [None]
